FAERS Safety Report 13756296 (Version 1)
Quarter: 2017Q3

REPORT INFORMATION
  Report Type: Spontaneous
  Country: CA (occurrence: CA)
  Receive Date: 20170714
  Receipt Date: 20170714
  Transmission Date: 20171127
  Serious: Yes (Hospitalization, Other)
  Sender: FDA-Public Use
  Company Number: CA-TEVA-786498ACC

PATIENT

DRUGS (1)
  1. PREDNISONE. [Suspect]
     Active Substance: PREDNISONE
     Indication: IMMUNOSUPPRESSION
     Dosage: GREATER THAN 15 MG/DAY [THE EQUIVALENT] FOR MORE THAN 21 DAYS WITHIN THREE MONTHS]

REACTIONS (1)
  - Pneumonia [Unknown]
